FAERS Safety Report 7537851-0 (Version None)
Quarter: 2011Q2

REPORT INFORMATION
  Report Type: 
  Country: None (occurrence: None)
  Receive Date: 20110609
  Receipt Date: 20110531
  Transmission Date: 20111010
  Serious: Yes (Life-Threatening, Hospitalization)
  Sender: FDA-Public Use
  Company Number: SK-BAXTER-2011BH008785

PATIENT
  Age: 76 Year
  Sex: Male

DRUGS (7)
  1. PREDNISONE [Concomitant]
  2. PYRIDOXINE [Concomitant]
  3. ALLOPURINOL [Concomitant]
  4. OMEPRAZOLE [Concomitant]
  5. ASPIRIN [Concomitant]
  6. GAMMAGARD LIQUID [Suspect]
     Indication: CHRONIC LYMPHOCYTIC LEUKAEMIA
     Route: 042
     Dates: start: 20110325, end: 20110325
  7. VERAPAMIL [Concomitant]

REACTIONS (6)
  - MYOCARDIAL INFARCTION [None]
  - HYPOXIA [None]
  - CYTOKINE RELEASE SYNDROME [None]
  - CHILLS [None]
  - HEART RATE INCREASED [None]
  - HYPERTENSIVE CRISIS [None]
